FAERS Safety Report 9524477 (Version 1)
Quarter: 2013Q1

REPORT INFORMATION
  Report Type: Spontaneous
  Country: US (occurrence: None)
  Receive Date: 20130305
  Receipt Date: 20130305
  Transmission Date: 20140127
  Serious: Yes (Hospitalization)
  Sender: FDA-Public Use
  Company Number: 163-21880-12021047

PATIENT
  Age: 82 Year
  Sex: Female

DRUGS (4)
  1. REVLIMID [Suspect]
     Indication: PLASMA CELL MYELOMA
     Route: 048
     Dates: start: 20110831
  2. HCTZ (HYDROCHLOROTHIAZIDE) [Concomitant]
  3. AMLODIPINE (AMLODIPINE) [Concomitant]
  4. TOPROL XL (METOPROLOL SUCCINATE) (100 MILLIGRAM) (METOPROLOL SUCCINATE) [Concomitant]

REACTIONS (5)
  - Proteinuria [None]
  - Dehydration [None]
  - Asthenia [None]
  - Fall [None]
  - Dizziness [None]
